FAERS Safety Report 16082116 (Version 3)
Quarter: 2019Q2

REPORT INFORMATION
  Report Type: Spontaneous
  Country: US (occurrence: US)
  Receive Date: 20190317
  Receipt Date: 20190428
  Transmission Date: 20190711
  Serious: Yes (Hospitalization, Other)
  Sender: FDA-Public Use
  Company Number: US-LP PHARMA-2019PRN00353

PATIENT
  Age: 67 Year
  Sex: Female
  Weight: 99.77 kg

DRUGS (3)
  1. UNSPECIFIED STEROIDS [Suspect]
     Active Substance: UNSPECIFIED INGREDIENT
     Dosage: UNK
     Dates: start: 200901
  2. VALSARTAN HCTZ [Concomitant]
     Active Substance: HYDROCHLOROTHIAZIDE\VALSARTAN
  3. CLONIDINE HYDROCHLORIDE. [Suspect]
     Active Substance: CLONIDINE HYDROCHLORIDE
     Indication: HYPERTENSION
     Dosage: 0.03 MG, 1X/DAY
     Route: 048
     Dates: start: 200812, end: 200901

REACTIONS (9)
  - Reaction to excipient [Recovered/Resolved]
  - Vaginal mucosal blistering [Recovered/Resolved]
  - Blood glucose increased [Recovered/Resolved]
  - Tongue blistering [Recovered/Resolved]
  - Oral mucosal blistering [Recovered/Resolved]
  - Skin discolouration [Recovered/Resolved]
  - Blister [Recovered/Resolved]
  - Lip blister [Recovered/Resolved]
  - Burns third degree [Recovered/Resolved]

NARRATIVE: CASE EVENT DATE: 200901
